FAERS Safety Report 9354156 (Version 1)
Quarter: 2013Q2

REPORT INFORMATION
  Report Type: Spontaneous
  Country: JP (occurrence: JP)
  Receive Date: 20130618
  Receipt Date: 20130618
  Transmission Date: 20140414
  Serious: Yes (Hospitalization)
  Sender: FDA-Public Use
  Company Number: JP-GLAXOSMITHKLINE-B0807042A

PATIENT
  Age: 63 Year
  Sex: Female

DRUGS (4)
  1. VALTREX [Suspect]
     Indication: PRODUCT USED FOR UNKNOWN INDICATION
     Dosage: 500MG PER DAY
     Route: 048
     Dates: start: 20120601, end: 20120604
  2. VOLTAREN [Concomitant]
     Route: 065
     Dates: start: 201203, end: 201206
  3. ITRIZOLE [Concomitant]
     Route: 065
  4. REVLIMID [Concomitant]
     Route: 048
     Dates: start: 201203

REACTIONS (4)
  - Altered state of consciousness [Recovering/Resolving]
  - Disorientation [Unknown]
  - Somnolence [Unknown]
  - Renal impairment [Unknown]
